FAERS Safety Report 9088844 (Version 1)
Quarter: 2013Q1

REPORT INFORMATION
  Report Type: Spontaneous
  Country: US (occurrence: US)
  Receive Date: 20130201
  Receipt Date: 20130201
  Transmission Date: 20140127
  Serious: Yes (Other)
  Sender: FDA-Public Use
  Company Number: PHEH2013US002669

PATIENT
  Sex: Female
  Weight: 87.53 kg

DRUGS (1)
  1. GILENYA [Suspect]
     Indication: MULTIPLE SCLEROSIS
     Dosage: 0.5 MG, QD
     Route: 048
     Dates: start: 20110719

REACTIONS (3)
  - Oligomenorrhoea [Recovering/Resolving]
  - Anaemia [Recovering/Resolving]
  - Menstrual disorder [Recovering/Resolving]
